FAERS Safety Report 4665299-5 (Version None)
Quarter: 2005Q2

REPORT INFORMATION
  Report Type: 
  Country: None (occurrence: None)
  Receive Date: 20050517
  Receipt Date: 20050504
  Transmission Date: 20051028
  Serious: Yes (Other)
  Sender: FDA-Public Use
  Company Number: 2005040441

PATIENT
  Sex: Male

DRUGS (3)
  1. ZOLOFT [Suspect]
     Indication: ILL-DEFINED DISORDER
  2. PRENATAL (ASCORBIC ACID, CALCIUM GLUCONATE, CUPRIC CARBONATE, BASIC, C [Concomitant]
  3. BENADRYL [Concomitant]

REACTIONS (5)
  - DRUG EXPOSURE DURING PREGNANCY [None]
  - HAEMATOCRIT DECREASED [None]
  - NEONATAL DISORDER [None]
  - RESPIRATORY DISORDER NEONATAL [None]
  - SNORING [None]
